FAERS Safety Report 6661519-6 (Version None)
Quarter: 2010Q1

REPORT INFORMATION
  Report Type: 
  Country: None (occurrence: None)
  Receive Date: 20100331
  Receipt Date: 20100326
  Transmission Date: 20100710
  Serious: Yes (Hospitalization)
  Sender: FDA-Public Use
  Company Number: BE-BRISTOL-MYERS SQUIBB COMPANY-15038953

PATIENT
  Age: 55 Year
  Sex: Female
  Weight: 51 kg

DRUGS (11)
  1. CISPLATIN [Suspect]
     Indication: NON-SMALL CELL LUNG CANCER
     Dosage: RECENT DOSE: 28SEP06
     Route: 042
     Dates: start: 20060706
  2. GEMZAR [Suspect]
     Indication: NON-SMALL CELL LUNG CANCER
     Dosage: 1887MG ON D 1+8 OF CY 1TO3,300MG/M2 ON DAY 1,8 OF CY 4+5(07SEP06-28SEP06)22D; RECENT DOSE:28SEP06
     Route: 042
     Dates: start: 20060706
  3. RADIATION THERAPY [Suspect]
     Indication: NON-SMALL CELL LUNG CANCER
     Dosage: 1 DF =63GY GIVEN IN 35 FRACTIONS IN 7WEEK
     Route: 065
     Dates: start: 20060907
  4. CARDIOASPIRINE [Concomitant]
     Indication: HYPERTENSION
     Dates: start: 20061004
  5. RANITIDINE [Concomitant]
     Indication: DYSPHAGIA
     Dates: start: 20061004
  6. ZOLPIDEM [Concomitant]
     Indication: INSOMNIA
     Dates: start: 20061004
  7. MOVICOL [Concomitant]
     Indication: CONSTIPATION
  8. LAXOBERON [Concomitant]
     Indication: CONSTIPATION
  9. INDOCIN [Concomitant]
     Indication: ODYNOPHAGIA
  10. MS DIRECT [Concomitant]
     Indication: MUSCULOSKELETAL PAIN
     Dates: start: 20060928
  11. DURAGESIC-100 [Concomitant]
     Indication: MUSCULOSKELETAL PAIN

REACTIONS (5)
  - DECREASED APPETITE [None]
  - DEPRESSION [None]
  - DYSPHAGIA [None]
  - OESOPHAGITIS [None]
  - VOMITING [None]
